FAERS Safety Report 13864370 (Version 1)
Quarter: 2017Q3

REPORT INFORMATION
  Report Type: Spontaneous
  Country: US (occurrence: US)
  Receive Date: 20170812
  Receipt Date: 20170812
  Transmission Date: 20171127
  Serious: No
  Sender: FDA-Public Use
  Company Number: None

PATIENT
  Age: 65 Year
  Sex: Male
  Weight: 80 kg

DRUGS (2)
  1. CIPRO [Suspect]
     Active Substance: CIPROFLOXACIN HYDROCHLORIDE
     Indication: URINARY TRACT INFECTION
     Dosage: ?          QUANTITY:1 TABLET(S);?
     Route: 048
     Dates: start: 20170725, end: 20170810
  2. IMBRUVICA [Concomitant]
     Active Substance: IBRUTINIB

REACTIONS (3)
  - Muscle spasms [None]
  - Impaired work ability [None]
  - Sleep disorder [None]

NARRATIVE: CASE EVENT DATE: 20170801
